FAERS Safety Report 19542319 (Version 1)
Quarter: 2021Q3

REPORT INFORMATION
  Report Type: Spontaneous
  Country: GH (occurrence: GH)
  Receive Date: 20210713
  Receipt Date: 20210713
  Transmission Date: 20211014
  Serious: Yes (Other)
  Sender: FDA-Public Use
  Company Number: GH-SUN PHARMACEUTICAL INDUSTRIES LTD-2021R1-303331

PATIENT
  Age: 47 Year
  Sex: Male

DRUGS (1)
  1. AZITHROMYCIN ANHYDROUS. [Suspect]
     Active Substance: AZITHROMYCIN ANHYDROUS
     Indication: PRODUCT USED FOR UNKNOWN INDICATION
     Dosage: UNK
     Route: 040

REACTIONS (2)
  - Palpitations [Recovered/Resolved]
  - Loss of consciousness [Recovered/Resolved]
